FAERS Safety Report 4790285-4 (Version None)
Quarter: 2005Q3

REPORT INFORMATION
  Report Type: 
  Country: None (occurrence: None)
  Receive Date: 20050914
  Receipt Date: 20041208
  Transmission Date: 20060218
  Serious: Yes (Hospitalization, Other)
  Sender: FDA-Public Use
  Company Number: 163-20785-04120253

PATIENT
  Age: 47 Year
  Sex: Male
  Weight: 126 kg

DRUGS (16)
  1. THALOMID [Suspect]
     Indication: GLIOBLASTOMA MULTIFORME
     Dosage: 100 MG, QD, ORAL
     Route: 048
     Dates: start: 20040928, end: 20041128
  2. CPT-11 (IRINOTECAN) (INJECTION FOR INFUSION) [Suspect]
     Indication: GLIOBLASTOMA MULTIFORME
     Dosage: 350/M^2, EVERY 3 WKS, INTRAVENOUS
     Route: 042
     Dates: start: 20040928, end: 20041109
  3. DECADRON [Concomitant]
  4. ADVIL (IBUPROFEN) (UNKNOWN) [Concomitant]
  5. ACTOS (TABLETS) [Concomitant]
  6. TOPAMAX [Concomitant]
  7. MAGNESIUM (MAGNESIUM) (TABLETS) [Concomitant]
  8. VITAMIN E (TOCOPHEROL) (UNKNOWN) [Concomitant]
  9. LISINOPRIL [Concomitant]
  10. NORVASC [Concomitant]
  11. ATENOLOL (ATENOLOL) (50 MILLIGRAM, TABLETS) [Concomitant]
  12. FENOFIBRATE [Concomitant]
  13. LASIX [Concomitant]
  14. LANTUS (INSULIN GLARGINE) (INJECTION) [Concomitant]
  15. HUMALOG (INSULIN LISPRO) (INJECTION) [Concomitant]
  16. MULTIVITAMINS (MULTIVITAMINS) (CAPSULES) [Concomitant]

REACTIONS (3)
  - DISEASE PROGRESSION [None]
  - DYSPNOEA EXERTIONAL [None]
  - PULMONARY EMBOLISM [None]
